FAERS Safety Report 5594388-6 (Version None)
Quarter: 2007Q4

REPORT INFORMATION
  Report Type: 
  Country: None (occurrence: None)
  Receive Date: 20071218
  Receipt Date: 20070712
  Transmission Date: 20080405
  Serious: Yes (Other)
  Sender: FDA-Public Use
  Company Number: 2006153155

PATIENT
  Sex: Female

DRUGS (3)
  1. BEXTRA [Suspect]
     Dosage: 10 MG, ORAL
     Route: 048
  2. VIOXX [Suspect]
     Dosage: ORAL
     Route: 048
  3. ... [Suspect]

REACTIONS (3)
  - ANGINA UNSTABLE [None]
  - BLOOD PRESSURE [None]
  - FATIGUE [None]
